FAERS Safety Report 24449425 (Version 2)
Quarter: 2024Q4

REPORT INFORMATION
  Report Type: Report from Study
  Country: GB (occurrence: GB)
  Receive Date: 20241017
  Receipt Date: 20241021
  Transmission Date: 20250115
  Serious: Yes (Hospitalization)
  Sender: NOVARTIS
  Company Number: GB-002147023-NVSC2024GB129215

PATIENT
  Sex: Female

DRUGS (5)
  1. COSENTYX [Suspect]
     Active Substance: SECUKINUMAB
     Indication: Psoriatic arthropathy
     Dosage: 150 MG, QW (2 PRE-FILLED DISPOSABLE INJECTION)
     Route: 058
  2. COSENTYX [Suspect]
     Active Substance: SECUKINUMAB
     Dosage: UNK
     Route: 065
  3. COSENTYX [Suspect]
     Active Substance: SECUKINUMAB
     Dosage: UNK
     Route: 065
  4. COSENTYX [Suspect]
     Active Substance: SECUKINUMAB
     Dosage: 150 MG (EOW)(2 PRE-FILLED DISPOSABLE INJECTION)
     Route: 058
  5. METHOTREXATE [Suspect]
     Active Substance: METHOTREXATE
     Indication: Product used for unknown indication
     Dosage: 10 MG, QW (FIRST INJECTIONS OF METHOTREXATE 10 MG PFP WEEKLY)
     Route: 065

REACTIONS (9)
  - Lower respiratory tract infection [Unknown]
  - Dyspnoea [Unknown]
  - Peripheral swelling [Unknown]
  - Cellulitis [Unknown]
  - Stasis dermatitis [Unknown]
  - Blood test abnormal [Unknown]
  - Malaise [Unknown]
  - Infection [Unknown]
  - Localised infection [Unknown]
